FAERS Safety Report 7299612-X (Version None)
Quarter: 2011Q1

REPORT INFORMATION
  Report Type: 
  Country: None (occurrence: None)
  Receive Date: 20110217
  Receipt Date: 20110216
  Transmission Date: 20110831
  Serious: Yes (Other)
  Sender: FDA-Public Use
  Company Number: US-ABBOTT-06P-163-0322597-00

PATIENT
  Sex: Female

DRUGS (20)
  1. CALCIUM SUPPLEMENTS [Concomitant]
     Indication: PRODUCT USED FOR UNKNOWN INDICATION
  2. MESCALINE [Concomitant]
     Indication: PRODUCT USED FOR UNKNOWN INDICATION
     Dosage: UP TO 3 TIMES PER DAY
  3. METFORMIN [Concomitant]
     Indication: PRODUCT USED FOR UNKNOWN INDICATION
  4. PREDNISONE [Concomitant]
     Indication: PRODUCT USED FOR UNKNOWN INDICATION
     Dosage: 15-30 MG EVERY DAY
  5. HUMIRA [Suspect]
     Indication: RHEUMATOID ARTHRITIS
     Route: 058
     Dates: start: 20030730, end: 20031231
  6. HUMIRA [Suspect]
  7. LANTUS [Concomitant]
     Indication: PRODUCT USED FOR UNKNOWN INDICATION
     Dosage: 34-45 U EVERY AM
  8. WARFARIN [Concomitant]
     Indication: PRODUCT USED FOR UNKNOWN INDICATION
  9. UNKNOWN INHALER [Concomitant]
     Indication: PRODUCT USED FOR UNKNOWN INDICATION
  10. VIT D [Concomitant]
     Indication: PRODUCT USED FOR UNKNOWN INDICATION
  11. POTASSIUM CHLORIDE [Concomitant]
     Indication: PRODUCT USED FOR UNKNOWN INDICATION
  12. PRENATAL 19 [Concomitant]
     Indication: PRODUCT USED FOR UNKNOWN INDICATION
  13. CRESTOR [Concomitant]
     Indication: PRODUCT USED FOR UNKNOWN INDICATION
  14. FLEXERIL [Concomitant]
     Indication: PRODUCT USED FOR UNKNOWN INDICATION
     Dosage: UP TO 3 TIMES PER DAY
  15. DIOVAN [Concomitant]
     Indication: PRODUCT USED FOR UNKNOWN INDICATION
  16. IRON [Concomitant]
     Indication: PRODUCT USED FOR UNKNOWN INDICATION
  17. NEXIUM [Concomitant]
     Indication: PRODUCT USED FOR UNKNOWN INDICATION
  18. MG OXIDE [Concomitant]
     Indication: PRODUCT USED FOR UNKNOWN INDICATION
  19. RIDURA [Concomitant]
     Indication: PRODUCT USED FOR UNKNOWN INDICATION
  20. TRIMETHOPRIS/SULFAMETHOXAZOLE [Concomitant]
     Indication: PRODUCT USED FOR UNKNOWN INDICATION
     Dosage: 1- 160/800MG EVERY 2 DAYS

REACTIONS (13)
  - VAGINAL HAEMORRHAGE [None]
  - MYOCARDIAL INFARCTION [None]
  - SCIATICA [None]
  - BACTERAEMIA [None]
  - BREAST HAEMORRHAGE [None]
  - PARAESTHESIA [None]
  - ARTHRITIS [None]
  - CORONARY ARTERY OCCLUSION [None]
  - CELLULITIS [None]
  - OOPHORECTOMY [None]
  - INCORRECT DOSE ADMINISTERED [None]
  - PSORIASIS [None]
  - PAIN IN EXTREMITY [None]
